FAERS Safety Report 4999358-4 (Version None)
Quarter: 2006Q2

REPORT INFORMATION
  Report Type: 
  Country: None (occurrence: None)
  Receive Date: 20060509
  Receipt Date: 20060509
  Transmission Date: 20061013
  Serious: Yes (Death)
  Sender: FDA-Public Use
  Company Number: None

PATIENT
  Age: 46 Year
  Sex: Male
  Weight: 118 kg

DRUGS (9)
  1. HEPARIN [Suspect]
     Indication: ATRIAL FIBRILLATION
     Dosage: VARIABLE
     Dates: start: 20060201, end: 20060206
  2. HEPARIN [Suspect]
     Indication: MITRAL VALVE DISEASE
     Dosage: VARIABLE
     Dates: start: 20060201, end: 20060206
  3. ZOSYN [Concomitant]
  4. HYDROCORTISONE [Concomitant]
  5. APAP TAB [Concomitant]
  6. HYDRALAZINE HCL [Concomitant]
  7. LORAZEPAM [Concomitant]
  8. RANITIDINE [Concomitant]
  9. VANCOMYCIN [Concomitant]

REACTIONS (5)
  - ACTIVATED PARTIAL THROMBOPLASTIN TIME PROLONGED [None]
  - BRAIN OEDEMA [None]
  - CEREBRAL HAEMATOMA [None]
  - INTRAVENTRICULAR HAEMORRHAGE [None]
  - MENTAL STATUS CHANGES [None]
